FAERS Safety Report 15132706 (Version 1)
Quarter: 2018Q3

REPORT INFORMATION
  Report Type: Spontaneous
  Country: FR (occurrence: FR)
  Receive Date: 20180712
  Receipt Date: 20180712
  Transmission Date: 20181010
  Serious: Yes (Hospitalization)
  Sender: FDA-Public Use
  Company Number: FR-SUN PHARMACEUTICAL INDUSTRIES LTD-2018RR-178028

PATIENT
  Age: 45 Year
  Sex: Male
  Weight: 56 kg

DRUGS (1)
  1. ATENOLOL. [Suspect]
     Active Substance: ATENOLOL
     Indication: POISONING DELIBERATE
     Dosage: 3000 MG, UNK
     Route: 048
     Dates: start: 20180523, end: 20180523

REACTIONS (4)
  - Aggression [Recovered/Resolved]
  - Hypothermia [Recovered/Resolved]
  - Agitation [Recovered/Resolved]
  - Heart rate decreased [Recovered/Resolved]

NARRATIVE: CASE EVENT DATE: 20180523
